FAERS Safety Report 13572516 (Version 1)
Quarter: 2017Q2

REPORT INFORMATION
  Report Type: Spontaneous
  Country: GB (occurrence: GB)
  Receive Date: 20170523
  Receipt Date: 20170523
  Transmission Date: 20170830
  Serious: Yes (Other)
  Sender: FDA-Public Use
  Company Number: GB-GLAXOSMITHKLINE-GB2017076297

PATIENT
  Age: 43 Year
  Sex: Female
  Weight: 96 kg

DRUGS (18)
  1. CHLORPHENAMINE [Concomitant]
     Active Substance: CHLORPHENIRAMINE MALEATE
     Dosage: 1 DF, BID
     Route: 065
     Dates: start: 20150416
  2. ESTRADIOL. [Concomitant]
     Active Substance: ESTRADIOL
     Dosage: 2 DF, BID
     Route: 065
     Dates: start: 20160321
  3. DULOXETINE. [Concomitant]
     Active Substance: DULOXETINE
     Dosage: USE AS DIRECTED
     Route: 065
     Dates: start: 20170131, end: 20170306
  4. HIBISCRUB [Concomitant]
     Active Substance: CHLORHEXIDINE GLUCONATE
     Dosage: USE AS DIRECTED
     Route: 065
     Dates: start: 20160729
  5. AMITRIPTYLINE HYDROCHLORIDE. [Concomitant]
     Active Substance: AMITRIPTYLINE HYDROCHLORIDE
     Dosage: 1-2 AT NIGHT
     Route: 065
     Dates: start: 20170404, end: 20170502
  6. DIHYDROCODEINE TARTRATE [Concomitant]
     Active Substance: DIHYDROCODEINE BITARTRATE
     Dosage: TAKE ONE EVERY 4-6 HRS
     Route: 065
     Dates: start: 20160617
  7. POVIDONE-IODINE. [Concomitant]
     Active Substance: POVIDONE-IODINE
     Dosage: USE AS DIRECTED
     Route: 065
     Dates: start: 20160729
  8. CARBAMAZEPINE. [Concomitant]
     Active Substance: CARBAMAZEPINE
     Dosage: 1 TABLET AT NIGHT, INTERMITENTLY ONLY AS AND WHEN NEEDED
     Route: 065
     Dates: start: 20170408, end: 20170506
  9. NASACORT [Concomitant]
     Active Substance: TRIAMCINOLONE ACETONIDE
     Dosage: USE AS DIRECTED
     Route: 065
     Dates: start: 20150416
  10. MIRTAZAPINE. [Concomitant]
     Active Substance: MIRTAZAPINE
     Indication: DEPRESSED MOOD
     Dosage: EACH NIGHT
     Route: 065
     Dates: start: 20170323, end: 20170423
  11. CROMOGLICATE SODIUM [Concomitant]
     Active Substance: CROMOLYN SODIUM
     Dosage: 1 GTT, QID
     Route: 065
     Dates: start: 20150416
  12. DICLOFENAC POTASSIUM. [Suspect]
     Active Substance: DICLOFENAC POTASSIUM
     Indication: PRODUCT USED FOR UNKNOWN INDICATION
     Dosage: UNK
     Route: 065
     Dates: start: 20170512
  13. FLUOXETINE [Concomitant]
     Active Substance: FLUOXETINE HYDROCHLORIDE
     Indication: DEPRESSED MOOD
     Dosage: EACH MORNING
     Route: 065
     Dates: start: 20170423
  14. OMEPRAZOLE. [Concomitant]
     Active Substance: OMEPRAZOLE
     Indication: GASTRIC PH DECREASED
     Dosage: 1 DF, QD
     Route: 065
     Dates: start: 20170512
  15. BETAMETHASONE VALERATE. [Concomitant]
     Active Substance: BETAMETHASONE VALERATE
     Indication: RASH
     Dosage: APPLY ONCE OR TWICE DAILY SPARINGLY
     Route: 065
     Dates: start: 20170323, end: 20170420
  16. ROPINIROLE. [Concomitant]
     Active Substance: ROPINIROLE
     Dosage: 1 TABLET AT NIGHT XOE 2 DAYS THEN 2 TABLETS AT NIGHT FOR 5 ...
     Route: 065
     Dates: start: 20170512
  17. IBUPROFEN. [Concomitant]
     Active Substance: IBUPROFEN
     Dosage: THREE TIMES DAILY AFTER FOOD
     Route: 065
     Dates: start: 20170512
  18. ZOPICLONE [Concomitant]
     Active Substance: ZOPICLONE
     Dosage: AT NIGHT
     Route: 065
     Dates: start: 20170323

REACTIONS (1)
  - Gastritis [Not Recovered/Not Resolved]

NARRATIVE: CASE EVENT DATE: 20170512
